FAERS Safety Report 9741750 (Version 1)
Quarter: 2013Q4

REPORT INFORMATION
  Report Type: Report from Study
  Country: US (occurrence: US)
  Receive Date: 20131210
  Receipt Date: 20131210
  Transmission Date: 20140711
  Serious: Yes (Other)
  Sender: FDA-Public Use
  Company Number: US-ROCHE-1315502

PATIENT
  Age: 66 Year
  Sex: Male

DRUGS (4)
  1. HERCEPTIN [Suspect]
     Indication: BREAST CANCER METASTATIC
     Dosage: FIRST LINE
     Route: 065
  2. HERCEPTIN [Suspect]
     Dosage: SECOND LINE
     Route: 065
  3. PERJETA [Suspect]
     Indication: BREAST CANCER METASTATIC
     Route: 065
  4. AFINITOR [Concomitant]

REACTIONS (1)
  - Cardiotoxicity [Unknown]
